FAERS Safety Report 20723845 (Version 1)
Quarter: 2022Q2

REPORT INFORMATION
  Report Type: Spontaneous
  Country: JP (occurrence: JP)
  Receive Date: 20220419
  Receipt Date: 20220419
  Transmission Date: 20220720
  Serious: Yes (Life-Threatening, Hospitalization, Other)
  Sender: FDA-Public Use
  Company Number: JP-RECORDATI-2022001455

PATIENT

DRUGS (3)
  1. DACTINOMYCIN [Suspect]
     Active Substance: DACTINOMYCIN
     Indication: Benign hydatidiform mole
     Dosage: 3-DAY COURSE
  2. METHOTREXATE [Suspect]
     Active Substance: METHOTREXATE
     Indication: Benign hydatidiform mole
     Dosage: 3-DAY COURSE
  3. ETOPOSIDE [Suspect]
     Active Substance: ETOPOSIDE
     Indication: Benign hydatidiform mole
     Dosage: 3-DAY COURSE

REACTIONS (9)
  - Septic shock [Unknown]
  - Cardiomyopathy [Unknown]
  - Sepsis [Unknown]
  - Infectious pleural effusion [Unknown]
  - Pneumonia [Unknown]
  - Febrile neutropenia [Recovering/Resolving]
  - Erythema [Unknown]
  - Stomatitis [Unknown]
  - Pyrexia [Unknown]
